FAERS Safety Report 9936882 (Version 2)
Quarter: 2014Q4

REPORT INFORMATION
  Report Type: Spontaneous
  Country: US (occurrence: None)
  Receive Date: 20140115
  Receipt Date: 20141015
  Transmission Date: 20150529
  Serious: Yes (Other)
  Sender: FDA-Public Use
  Company Number: 2013US002518

PATIENT
  Age: 68 Year
  Sex: Female
  Weight: 88 kg

DRUGS (1)
  1. ICLUSIG [Suspect]
     Active Substance: PONATINIB
     Indication: CHRONIC MYELOID LEUKAEMIA
     Route: 048
     Dates: start: 20130513, end: 20130916

REACTIONS (5)
  - Pollakiuria [None]
  - Lipase increased [None]
  - Constipation [None]
  - Calcinosis [None]
  - Abdominal pain [None]

NARRATIVE: CASE EVENT DATE: 201308
